FAERS Safety Report 19948847 (Version 2)
Quarter: 2021Q4

REPORT INFORMATION
  Report Type: Spontaneous
  Country: US (occurrence: US)
  Receive Date: 20211013
  Receipt Date: 20211230
  Transmission Date: 20220303
  Serious: Yes (Death, Life-Threatening, Hospitalization, Other)
  Sender: FDA-Public Use
  Company Number: US-NOVARTISPH-NVSC2021US231687

PATIENT
  Age: 18 Year
  Sex: Male
  Weight: 76.4 kg

DRUGS (4)
  1. TRAMETINIB [Suspect]
     Active Substance: TRAMETINIB
     Indication: Leptomeningeal myelomatosis
     Dosage: 2 MG, QD
     Route: 048
     Dates: start: 20210904, end: 20210907
  2. TRAMETINIB [Suspect]
     Active Substance: TRAMETINIB
     Dosage: 2 MG, QD
     Route: 048
     Dates: start: 20210911, end: 20211104
  3. PEMBROLIZUMAB [Concomitant]
     Active Substance: PEMBROLIZUMAB
     Indication: N-ras gene mutation
     Dosage: 200 MG (INTRAVENOUS INFUSION)
     Route: 042
     Dates: start: 20210827, end: 20210827
  4. PREDNISONE [Concomitant]
     Active Substance: PREDNISONE
     Indication: Product used for unknown indication
     Dosage: UNK
     Route: 048

REACTIONS (11)
  - Leptomeningeal myelomatosis [Fatal]
  - Malignant neoplasm progression [Fatal]
  - Hydrocephalus [Fatal]
  - Cerebellar haemorrhage [Recovering/Resolving]
  - Ataxia [Unknown]
  - Dysarthria [Unknown]
  - Confusional state [Unknown]
  - Asthenia [Unknown]
  - Brain compression [Unknown]
  - Cerebellar tumour [Unknown]
  - Product use in unapproved indication [Unknown]

NARRATIVE: CASE EVENT DATE: 20210907
